FAERS Safety Report 26171408 (Version 1)
Quarter: 2025Q4

REPORT INFORMATION
  Report Type: Spontaneous
  Country: US (occurrence: None)
  Receive Date: 20251217
  Receipt Date: 20251217
  Transmission Date: 20260117
  Serious: Yes (unspecified)
  Sender: FDA-CTU
  Company Number: None

PATIENT
  Age: 32 Year
  Sex: Female
  Weight: 72 kg

DRUGS (1)
  1. ARIPIPRAZOLE [Suspect]
     Active Substance: ARIPIPRAZOLE
     Indication: Schizophrenia
     Dosage: OTHER QUANTITY : 1 TABLET(S);?FREQUENCY : DAILY;
     Route: 048
     Dates: start: 20251217

REACTIONS (2)
  - Somnolence [None]
  - Nausea [None]

NARRATIVE: CASE EVENT DATE: 20251217
